FAERS Safety Report 9213394 (Version 1)
Quarter: 2013Q2

REPORT INFORMATION
  Report Type: Spontaneous
  Country: US (occurrence: None)
  Receive Date: 20130405
  Receipt Date: 20130405
  Transmission Date: 20140414
  Serious: Yes (Hospitalization)
  Sender: FDA-Public Use
  Company Number: None

PATIENT
  Age: 77 Year
  Sex: Male
  Weight: 96.4 kg

DRUGS (1)
  1. WARFARIN [Suspect]
     Dates: start: 20120831

REACTIONS (3)
  - Haemorrhage [None]
  - International normalised ratio decreased [None]
  - Haemoptysis [None]
